FAERS Safety Report 7643835-4 (Version None)
Quarter: 2011Q3

REPORT INFORMATION
  Report Type: 
  Country: None (occurrence: None)
  Receive Date: 20110729
  Receipt Date: 20100602
  Transmission Date: 20111222
  Serious: No
  Sender: FDA-Public Use
  Company Number: US-GLAXOSMITHKLINE-A0865623A

PATIENT
  Age: 57 Year
  Sex: Female
  Weight: 85.9 kg

DRUGS (5)
  1. SUMATRIPTAN SUCCINATE [Suspect]
     Indication: MIGRAINE
     Dosage: 100MG AS REQUIRED
     Route: 048
     Dates: start: 20100301
  2. SUMATRIPTAN SUCCINATE [Suspect]
     Dosage: 100MG AS REQUIRED
     Route: 048
  3. VICODIN [Concomitant]
  4. SAVELLA [Concomitant]
  5. FOSAMAX [Concomitant]
     Indication: BONE DISORDER

REACTIONS (2)
  - DRUG INEFFECTIVE [None]
  - PRODUCT QUALITY ISSUE [None]
